FAERS Safety Report 7121978-1 (Version None)
Quarter: 2010Q4

REPORT INFORMATION
  Report Type: 
  Country: None (occurrence: None)
  Receive Date: 20101124
  Receipt Date: 20101116
  Transmission Date: 20110411
  Serious: Yes (Other)
  Sender: FDA-Public Use
  Company Number: A0862303A

PATIENT
  Sex: Male
  Weight: 107.3 kg

DRUGS (9)
  1. AVANDIA [Suspect]
     Dosage: 4MG PER DAY
     Route: 048
     Dates: start: 20030915, end: 20040409
  2. LITHIUM [Concomitant]
  3. METFORMIN [Concomitant]
  4. SYNTHROID [Concomitant]
  5. GLYBURIDE [Concomitant]
  6. RANITIDINE [Concomitant]
  7. GABAPENTIN [Concomitant]
  8. LOVASTATIN [Concomitant]
  9. IRBESARTAN [Concomitant]

REACTIONS (6)
  - CARDIAC ARREST [None]
  - CEREBROVASCULAR ACCIDENT [None]
  - FLUID OVERLOAD [None]
  - FLUID RETENTION [None]
  - HEART INJURY [None]
  - LIVER INJURY [None]
